FAERS Safety Report 24413114 (Version 1)
Quarter: 2024Q4

REPORT INFORMATION
  Report Type: Report from Study
  Country: US (occurrence: US)
  Receive Date: 20241008
  Receipt Date: 20241008
  Transmission Date: 20250114
  Serious: Yes (Other)
  Sender: NOVARTIS
  Company Number: US-002147023-NVSC2024US005289

PATIENT
  Sex: Female

DRUGS (3)
  1. LEQVIO [Suspect]
     Active Substance: INCLISIRAN SODIUM
     Indication: Coronary artery disease
     Dosage: 284 MG
     Route: 058
     Dates: start: 20231017
  2. LEQVIO [Suspect]
     Active Substance: INCLISIRAN SODIUM
     Indication: Peripheral vascular disorder
     Dosage: UNK
     Route: 065
     Dates: start: 20240902
  3. ASPIRIN [Concomitant]
     Active Substance: ASPIRIN
     Indication: Product used for unknown indication
     Dosage: UNK
     Route: 065

REACTIONS (6)
  - Lower respiratory tract infection [Unknown]
  - Oropharyngeal pain [Recovered/Resolved]
  - Productive cough [Recovered/Resolved]
  - Abnormal dreams [Recovered/Resolved]
  - Nasopharyngitis [Unknown]
  - Muscle spasms [Recovering/Resolving]
